FAERS Safety Report 20170598 (Version 4)
Quarter: 2022Q1

REPORT INFORMATION
  Report Type: Report from Study
  Country: US (occurrence: None)
  Receive Date: 20211210
  Receipt Date: 20220117
  Transmission Date: 20220424
  Serious: Yes (Hospitalization)
  Sender: FDA-Public Use
  Company Number: US-ROCHE-2972034

PATIENT
  Age: 65 Year
  Sex: Male
  Weight: 101 kg

DRUGS (4)
  1. ATEZOLIZUMAB [Suspect]
     Active Substance: ATEZOLIZUMAB
     Indication: Prostate cancer metastatic
     Dosage: ON 09/NOV/2021, HE RECEIVED LAST DOSE OF ATEZOLIZUMAB PRIOR TO ONSET OF SERIOUS ADVERSE EVENT.
     Route: 041
     Dates: start: 20211109
  2. ABIRATERONE [Suspect]
     Active Substance: ABIRATERONE
     Indication: Prostate cancer metastatic
     Dosage: ON 24/NOV/2021, HE RECEIVED LAST DOSE OF ABIRATERONE PRIOR TO ONSET OF SERIOUS ADVERSE EVENT.
     Route: 048
     Dates: start: 20211124
  3. PREDNISONE [Suspect]
     Active Substance: PREDNISONE
     Indication: Prostate cancer metastatic
     Dosage: ON 24/NOV/2021, HE RECEIVED LAST DOSE OF PREDNISONE PRIOR TO ONSET OF ADVERSE EVENT.
     Route: 048
     Dates: start: 20211124
  4. LUPRON [Suspect]
     Active Substance: LEUPROLIDE ACETATE
     Indication: Prostate cancer metastatic
     Dosage: ON 19/OCT/2021, HE RECEIVED LAST DOSE OF LEUPRORELIN ACETATE PRIOR TO ONSET OF SERIOUS ADVERSE EVENT
     Route: 030
     Dates: start: 20211019

REACTIONS (1)
  - Atrial flutter [Recovered/Resolved]

NARRATIVE: CASE EVENT DATE: 20211130
